FAERS Safety Report 8277479-0 (Version None)
Quarter: 2012Q2

REPORT INFORMATION
  Report Type: 
  Country: None (occurrence: None)
  Receive Date: 20120412
  Receipt Date: 20120410
  Transmission Date: 20120825
  Serious: Yes (Death, Life-Threatening)
  Sender: FDA-Public Use
  Company Number: PHHY2012JP030435

PATIENT
  Age: 87 Year
  Sex: Female

DRUGS (23)
  1. VANCOMYCIN HYCHLORIDE [Suspect]
     Indication: PNEUMONIA STAPHYLOCOCCAL
     Dosage: 1 G/DAY
     Route: 042
     Dates: start: 20110922, end: 20110925
  2. VANCOMYCIN HYCHLORIDE [Suspect]
     Dosage: 1 G/DAY
     Route: 042
     Dates: start: 20110927, end: 20110927
  3. PROCYLIN [Concomitant]
     Indication: PULMONARY HYPERTENSION
     Dosage: 60 UG, UNK
     Route: 048
     Dates: start: 20111001, end: 20111018
  4. PANTETHINE [Concomitant]
     Dates: end: 20110928
  5. ASCORBIC ACID [Concomitant]
     Dates: end: 20110928
  6. VANCOMYCIN HYCHLORIDE [Suspect]
     Dosage: 0.5 G/DAY
     Route: 042
     Dates: start: 20111018, end: 20111018
  7. DOPAMINE HCL [Concomitant]
     Indication: LIFE SUPPORT
     Dosage: 600 MG, UNK
     Dates: start: 20110925, end: 20111023
  8. ZANTAC [Concomitant]
     Dates: end: 20110928
  9. HUMAN RED BLOOD CELLS [Concomitant]
     Indication: ANAEMIA
     Dosage: 4 IU, UNK
     Dates: start: 20110927, end: 20110927
  10. SOLDEM [Concomitant]
     Dates: start: 20110928
  11. VANCOMYCIN HYCHLORIDE [Suspect]
     Dosage: 0.5 G/DAY
     Route: 042
     Dates: start: 20110926, end: 20110926
  12. VANCOMYCIN HYCHLORIDE [Suspect]
     Dosage: 1 G/DAY
     Route: 042
     Dates: start: 20111017, end: 20111017
  13. ALDACTONE [Concomitant]
     Indication: PULMONARY HYPERTENSION
     Dosage: 25 MG, UNK
     Route: 048
     Dates: start: 20111001, end: 20111018
  14. DIGOXIN [Concomitant]
     Indication: CARDIAC FAILURE CONGESTIVE
     Dosage: 0.125 MG, UNK
     Route: 048
     Dates: start: 20111001, end: 20111018
  15. WARFARIN SODIUM [Concomitant]
     Indication: CARDIAC FAILURE CONGESTIVE
     Dosage: 1.5 MG, UNK
     Route: 048
     Dates: start: 20111001, end: 20111018
  16. TPN ELECTROLYTES IN PLASTIC CONTAINER [Concomitant]
     Dates: end: 20110928
  17. FUROSEMIDE [Concomitant]
     Indication: POLYURIA
     Dosage: 40 MG, UNK
     Route: 042
     Dates: start: 20110914, end: 20111005
  18. GLUCOSE [Concomitant]
     Dates: end: 20110928
  19. VANCOMYCIN HYCHLORIDE [Suspect]
     Dosage: 0.5 G/DAY
     Route: 042
     Dates: start: 20110930, end: 20110930
  20. VANCOMYCIN HYCHLORIDE [Suspect]
     Dosage: 0.5 G/DAY
     Route: 042
     Dates: start: 20111010, end: 20111016
  21. FUROSEMIDE [Concomitant]
     Indication: PULMONARY HYPERTENSION
     Dosage: 60 MG, UNK
     Route: 048
     Dates: start: 20111001, end: 20111018
  22. NEOPHAGEN [Concomitant]
     Indication: ANAEMIA
     Dosage: 40 ML, UNK
     Route: 042
     Dates: start: 20110927, end: 20110927
  23. KALGUT [Concomitant]
     Dosage: 15 MG, UNK
     Route: 048
     Dates: start: 20111001, end: 20111018

REACTIONS (6)
  - PYREXIA [None]
  - ANURIA [None]
  - CIRCULATORY COLLAPSE [None]
  - BLOOD PRESSURE DECREASED [None]
  - RENAL IMPAIRMENT [None]
  - URINE OUTPUT DECREASED [None]
